FAERS Safety Report 18911580 (Version 4)
Quarter: 2021Q2

REPORT INFORMATION
  Report Type: Spontaneous
  Country: US (occurrence: US)
  Receive Date: 20210218
  Receipt Date: 20210625
  Transmission Date: 20210717
  Serious: No
  Sender: FDA-Public Use
  Company Number: US-VERTEX PHARMACEUTICALS-2021-002502

PATIENT
  Age: 43 Year
  Sex: Female

DRUGS (17)
  1. PRISTIQ EXTENDED?RELEASE [Concomitant]
     Active Substance: DESVENLAFAXINE SUCCINATE
  2. PULMOZYME [Concomitant]
     Active Substance: DORNASE ALFA
  3. TRIKAFTA [Suspect]
     Active Substance: ELEXACAFTOR\IVACAFTOR\TEZACAFTOR
     Indication: CYSTIC FIBROSIS
     Dosage: 2 ORANGE TABLETS (100 MG ELEXA/ 50 MG TEZA/ 75 MG IVA) AM 1 BLUE TABLET 150MG (IVA) PM
     Route: 048
     Dates: start: 20210127, end: 2021
  4. CALCIUM [Concomitant]
     Active Substance: CALCIUM
  5. TRIKAFTA [Suspect]
     Active Substance: ELEXACAFTOR\IVACAFTOR\TEZACAFTOR
     Dosage: 1 AM PILL
     Route: 048
     Dates: start: 2021, end: 20210127
  6. CLONAZEPAM. [Concomitant]
     Active Substance: CLONAZEPAM
  7. ZOLPIDEM TARTRATE. [Concomitant]
     Active Substance: ZOLPIDEM TARTRATE
  8. ALBUTEROL SULFATE. [Concomitant]
     Active Substance: ALBUTEROL SULFATE
  9. SODIUM CHLORIDE. [Concomitant]
     Active Substance: SODIUM CHLORIDE
  10. TRIKAFTA [Suspect]
     Active Substance: ELEXACAFTOR\IVACAFTOR\TEZACAFTOR
     Dosage: 1 TAB (100MG ELEXA/50MG TEZA/75MG IVA) AM; 1 TAB (150MG IVA) PM
     Route: 048
     Dates: start: 20210127
  11. VITAMIN D3 [Concomitant]
     Active Substance: CHOLECALCIFEROL
  12. TOBRAMYCIN. [Concomitant]
     Active Substance: TOBRAMYCIN
  13. TRIKAFTA [Suspect]
     Active Substance: ELEXACAFTOR\IVACAFTOR\TEZACAFTOR
     Dosage: REDUCED DOSE
     Route: 048
     Dates: start: 2021, end: 2021
  14. HYDROCODONE/ACETAMINOPHEN [Concomitant]
     Active Substance: ACETAMINOPHEN\HYDROCODONE
  15. TRIKAFTA [Suspect]
     Active Substance: ELEXACAFTOR\IVACAFTOR\TEZACAFTOR
     Dosage: FULL DOSE
     Route: 048
     Dates: start: 202104, end: 2021
  16. VITAMIN C [Concomitant]
     Active Substance: ASCORBIC ACID
  17. ZENPEP [Concomitant]
     Active Substance: PANCRELIPASE AMYLASE\PANCRELIPASE LIPASE\PANCRELIPASE PROTEASE

REACTIONS (7)
  - Swelling face [Recovered/Resolved]
  - Peripheral swelling [Recovering/Resolving]
  - Product dose omission issue [Recovered/Resolved]
  - Joint swelling [Unknown]
  - Feeling abnormal [Unknown]
  - Arthralgia [Unknown]
  - Skin tightness [Unknown]

NARRATIVE: CASE EVENT DATE: 2021
